FAERS Safety Report 5157878-6 (Version None)
Quarter: 2006Q4

REPORT INFORMATION
  Report Type: 
  Country: None (occurrence: None)
  Receive Date: 20061115
  Receipt Date: 20061109
  Transmission Date: 20070319
  Serious: Yes (Other)
  Sender: FDA-Public Use
  Company Number: GXKR2006GB07242

PATIENT
  Age: 22 Year
  Sex: Female

DRUGS (2)
  1. PAROXETINE HCL [Suspect]
     Indication: DEPRESSION
     Dosage: 20 MG, ORAL
     Route: 048
     Dates: start: 20061011, end: 20061017
  2. CITALOPRAM HYDROBROMIDE [Concomitant]

REACTIONS (2)
  - AMNESIA [None]
  - HALLUCINATION, VISUAL [None]
